FAERS Safety Report 5670035-X (Version None)
Quarter: 2008Q1

REPORT INFORMATION
  Report Type: 
  Country: None (occurrence: None)
  Receive Date: 20080312
  Receipt Date: 20080225
  Transmission Date: 20080703
  Serious: Yes (Hospitalization)
  Sender: FDA-Public Use
  Company Number: 8029926

PATIENT
  Age: 46 Year
  Sex: Male

DRUGS (6)
  1. KEPPRA [Suspect]
     Dosage: 500 MG 2/D PO
     Route: 048
     Dates: start: 20080122
  2. LAMICTAL [Concomitant]
  3. GARDENAL [Concomitant]
  4. RENITEC [Concomitant]
  5. DIPHANTOINE [Concomitant]
  6. FRISIUM [Concomitant]

REACTIONS (1)
  - HYPONATRAEMIA [None]
